FAERS Safety Report 7434603-7 (Version None)
Quarter: 2011Q2

REPORT INFORMATION
  Report Type: 
  Country: None (occurrence: None)
  Receive Date: 20110414
  Receipt Date: 20110401
  Transmission Date: 20111010
  Serious: Yes (Life-Threatening)
  Sender: FDA-Public Use
  Company Number: ABR_00032_2011

PATIENT
  Sex: Male

DRUGS (11)
  1. ERYTHROMYCIN 2% SOLUTION [Suspect]
     Indication: ERYSIPELAS
     Dates: start: 20110103, end: 20110114
  2. PREGABALIN [Concomitant]
  3. PANADEINE CO [Concomitant]
  4. TARDYFERON /01675201/ [Concomitant]
  5. SUPROFEN [Concomitant]
  6. ALPRAZOLAM [Concomitant]
  7. PENTOXIFYLLINE [Concomitant]
  8. ESOMEPRAZOLE MAGNESIUM [Concomitant]
  9. ALFUZOSINE [Concomitant]
  10. AUGMENTIN '125' [Concomitant]
  11. BISOPROLOL FUMARATE [Concomitant]

REACTIONS (4)
  - DRUG INTERACTION [None]
  - CARDIO-RESPIRATORY ARREST [None]
  - PULMONARY HYPERTENSION [None]
  - ATRIAL FIBRILLATION [None]
